FAERS Safety Report 9370121 (Version 1)
Quarter: 2013Q2

REPORT INFORMATION
  Report Type: Spontaneous
  Country: TR (occurrence: TR)
  Receive Date: 20130626
  Receipt Date: 20130626
  Transmission Date: 20140414
  Serious: Yes (Other)
  Sender: FDA-Public Use
  Company Number: PHHY2013TR063445

PATIENT
  Age: 16 Year
  Sex: Female

DRUGS (4)
  1. FLUOXETINE [Suspect]
     Indication: EPILEPSY
     Dosage: 20 MG, PER DAY
  2. FLUOXETINE [Suspect]
     Indication: CONVERSION DISORDER
  3. LEVETIRACETAM [Concomitant]
     Indication: EPILEPSY
     Dosage: 1000 MG, UNK
  4. LEVETIRACETAM [Concomitant]
     Indication: CONVERSION DISORDER

REACTIONS (4)
  - Opisthotonus [Recovered/Resolved]
  - Muscle contractions involuntary [Recovered/Resolved]
  - Dystonia [Recovered/Resolved]
  - Epilepsy [Recovered/Resolved]
